FAERS Safety Report 8760930 (Version 2)
Quarter: 2012Q4

REPORT INFORMATION
  Report Type: 
  Country: IT (occurrence: IT)
  Receive Date: 20120830
  Receipt Date: 20120920
  Transmission Date: 20130627
  Serious: Yes (Hospitalization)
  Sender: FDA-Public Use
  Company Number: PHHY2012IT074622

PATIENT
  Age: 47 Year
  Sex: Male

DRUGS (1)
  1. VOLTFAST [Suspect]
     Indication: BACK PAIN
     Dosage: 1 DF
     Route: 048
     Dates: start: 20120505, end: 20120505

REACTIONS (3)
  - Throat tightness [Recovered/Resolved]
  - Urticaria [Recovered/Resolved]
  - Pruritus [Recovered/Resolved]
